FAERS Safety Report 25061436 (Version 1)
Quarter: 2025Q1

REPORT INFORMATION
  Report Type: Spontaneous
  Country: US (occurrence: US)
  Receive Date: 20250311
  Receipt Date: 20250311
  Transmission Date: 20250408
  Serious: Yes (Other)
  Sender: AMGEN
  Company Number: US-AMGEN-USASP2025043283

PATIENT
  Age: 78 Year
  Sex: Female

DRUGS (1)
  1. REPATHA [Suspect]
     Active Substance: EVOLOCUMAB
     Indication: Blood cholesterol abnormal
     Dosage: 140 MILLIGRAM, Q2WK
     Route: 058

REACTIONS (13)
  - Pneumonia viral [Unknown]
  - Pneumonia [Unknown]
  - Pelvic fracture [Unknown]
  - Spinal cord disorder [Unknown]
  - Intervertebral disc protrusion [Unknown]
  - Arthralgia [Unknown]
  - Brain fog [Unknown]
  - Blood glucose increased [Unknown]
  - Dizziness [Unknown]
  - Speech disorder [Unknown]
  - Fungal foot infection [Unknown]
  - Back pain [Unknown]
  - Influenza [Unknown]

NARRATIVE: CASE EVENT DATE: 20240901
